FAERS Safety Report 25417404 (Version 1)
Quarter: 2025Q2

REPORT INFORMATION
  Report Type: Spontaneous
  Country: US (occurrence: US)
  Receive Date: 20250610
  Receipt Date: 20250610
  Transmission Date: 20250717
  Serious: No
  Sender: ROCHE
  Company Number: US-ROCHE-10000302195

PATIENT
  Age: 19 Month
  Sex: Male

DRUGS (2)
  1. RITUXIMAB [Suspect]
     Active Substance: RITUXIMAB
     Indication: Alloimmunisation
     Dosage: FOR 4 WEEKS AND EVERY 2 WEEKS FOR 1 MONTH, THEN MONTHLY FOR A TOTAL OF 8 DOSES.
     Route: 042
  2. DARATUMUMAB [Suspect]
     Active Substance: DARATUMUMAB
     Indication: Alloimmunisation
     Dosage: FOR 4 WEEKS AND EVERY 2 WEEKS FOR 1 MONTH, THEN MONTHLY FOR A TOTAL OF 8 DOSES.
     Route: 042

REACTIONS (1)
  - Catheter site infection [Unknown]
